FAERS Safety Report 8573833-8 (Version None)
Quarter: 2012Q3

REPORT INFORMATION
  Report Type: 
  Country: None (occurrence: None)
  Receive Date: 20120806
  Receipt Date: 20110907
  Transmission Date: 20120928
  Serious: No
  Sender: FDA-Public Use
  Company Number: US-GLAXOSMITHKLINE-A0943720A

PATIENT
  Age: 74 Year
  Sex: Male

DRUGS (3)
  1. GABAPENTIN [Concomitant]
  2. FLUTICASONE PROPIONATE [Suspect]
     Indication: PRODUCT USED FOR UNKNOWN INDICATION
     Route: 055
     Dates: start: 20110904
  3. BACLOFEN [Concomitant]

REACTIONS (3)
  - DYSPNOEA [None]
  - FEELING JITTERY [None]
  - PRODUCT QUALITY ISSUE [None]
